FAERS Safety Report 10146092 (Version 2)
Quarter: 2014Q2

REPORT INFORMATION
  Report Type: Spontaneous
  Country: GB (occurrence: GB)
  Receive Date: 20140501
  Receipt Date: 20140604
  Transmission Date: 20141212
  Serious: Yes (Other)
  Sender: FDA-Public Use
  Company Number: GB-MYLANLABS-2014S1009427

PATIENT
  Age: 55 Year
  Sex: Female

DRUGS (7)
  1. CITALOPRAM [Suspect]
     Indication: DEPRESSION
     Route: 048
     Dates: start: 201303, end: 201402
  2. KEPPRA [Suspect]
     Indication: EPILEPSY
     Route: 048
     Dates: start: 201401, end: 20140216
  3. ZONISAMIDE [Suspect]
     Indication: EPILEPSY
     Route: 051
     Dates: start: 201401, end: 20140216
  4. ASACOL [Concomitant]
  5. OMEPRAZOLE [Concomitant]
  6. TEGRETOL [Concomitant]
  7. CLOBAZAM [Concomitant]

REACTIONS (6)
  - Suicidal ideation [Unknown]
  - Intentional self-injury [Unknown]
  - Anxiety [Unknown]
  - Drug ineffective [Unknown]
  - Epilepsy [Unknown]
  - Withdrawal syndrome [Unknown]
